FAERS Safety Report 17317083 (Version 1)
Quarter: 2020Q1

REPORT INFORMATION
  Report Type: Spontaneous
  Country: DE (occurrence: DE)
  Receive Date: 20200124
  Receipt Date: 20200124
  Transmission Date: 20200409
  Serious: Yes (Other)
  Sender: FDA-Public Use
  Company Number: DE-MYLANLABS-2020M1007284

PATIENT
  Sex: Female

DRUGS (4)
  1. METOPROLOL. [Suspect]
     Active Substance: METOPROLOL
     Dosage: UNK (STARTED ON AN UNKNOWN DATE AND STOPPED)
  2. EUTHYROX [Suspect]
     Active Substance: LEVOTHYROXINE SODIUM
     Dosage: UNK(DOSAGE INCREASED)
  3. METOPROLOL. [Suspect]
     Active Substance: METOPROLOL
     Indication: ARRHYTHMIA
     Dosage: UNK(RESTARTED)
  4. EUTHYROX [Suspect]
     Active Substance: LEVOTHYROXINE SODIUM
     Indication: AUTOIMMUNE THYROIDITIS
     Dosage: UNK

REACTIONS (6)
  - Sleep disorder [Unknown]
  - Blood pressure increased [Not Recovered/Not Resolved]
  - Atrial fibrillation [Unknown]
  - Blood thyroid stimulating hormone increased [Not Recovered/Not Resolved]
  - Cardiac failure [Unknown]
  - Tachycardia [Unknown]
